FAERS Safety Report 4914789-6 (Version None)
Quarter: 2006Q1

REPORT INFORMATION
  Report Type: 
  Country: None (occurrence: None)
  Receive Date: 20060113
  Receipt Date: 20051020
  Transmission Date: 20060701
  Serious: No
  Sender: FDA-Public Use
  Company Number: 2005SP003614

PATIENT
  Age: 42 Year
  Sex: Male

DRUGS (3)
  1. LUNESTA [Suspect]
     Indication: INSOMNIA
     Dosage: 3 MG; HS ; ORAL
     Route: 048
     Dates: start: 20051018, end: 20051019
  2. VALSARTAN [Concomitant]
  3. PREVACID [Concomitant]

REACTIONS (2)
  - DYSGEUSIA [None]
  - HANGOVER [None]
